FAERS Safety Report 4778458-8 (Version None)
Quarter: 2005Q3

REPORT INFORMATION
  Report Type: 
  Country: None (occurrence: None)
  Receive Date: 20050923
  Receipt Date: 20050923
  Transmission Date: 20060218
  Serious: Yes (Hospitalization)
  Sender: FDA-Public Use
  Company Number: None

PATIENT
  Age: 54 Year
  Weight: 63.9572 kg

DRUGS (1)
  1. COUMADIN [Suspect]

REACTIONS (4)
  - COAGULOPATHY [None]
  - HAEMOPTYSIS [None]
  - LUNG INFECTION [None]
  - MYCOBACTERIUM AVIUM COMPLEX INFECTION [None]
